FAERS Safety Report 17867164 (Version 1)
Quarter: 2020Q2

REPORT INFORMATION
  Report Type: Spontaneous
  Country: HR (occurrence: HR)
  Receive Date: 20200605
  Receipt Date: 20200605
  Transmission Date: 20200714
  Serious: Yes (Other)
  Sender: FDA-Public Use
  Company Number: HR-AMGEN-HRVSP2020086830

PATIENT
  Age: 60 Year
  Sex: Male
  Weight: 100 kg

DRUGS (12)
  1. 5-FU [FLUOROURACIL] [Concomitant]
     Active Substance: FLUOROURACIL
     Indication: COLON CANCER
     Dosage: UNK
     Dates: start: 20150612
  2. ALLOPURINOL. [Concomitant]
     Active Substance: ALLOPURINOL
     Dosage: UNK
  3. VECTIBIX [Suspect]
     Active Substance: PANITUMUMAB
     Indication: HEPATIC CANCER METASTATIC
     Dosage: 600 MILLIGRAM, CYCLICAL
     Route: 065
     Dates: start: 201903
  4. LOSARTAN. [Concomitant]
     Active Substance: LOSARTAN
     Indication: HYPERTENSION
     Dosage: UNK
  5. CAPECITABINE. [Concomitant]
     Active Substance: CAPECITABINE
     Indication: COLON CANCER
     Dosage: UNK
     Dates: start: 20160523
  6. FOLINIC ACID [Concomitant]
     Active Substance: LEUCOVORIN
     Indication: COLON CANCER
     Dosage: UNK
     Dates: start: 20150612
  7. FOLINIC ACID [Concomitant]
     Active Substance: LEUCOVORIN
     Indication: HEPATIC CANCER METASTATIC
  8. IRINOTECAN [Concomitant]
     Active Substance: IRINOTECAN
     Indication: COLON CANCER
     Dosage: UNK
     Dates: start: 20150612
  9. VECTIBIX [Suspect]
     Active Substance: PANITUMUMAB
     Indication: COLON CANCER
     Dosage: 600 MILLIGRAM, CYCLICAL
     Route: 065
     Dates: start: 20150612, end: 20171123
  10. CAPECITABINE. [Concomitant]
     Active Substance: CAPECITABINE
     Indication: HEPATIC CANCER METASTATIC
  11. 5-FU [FLUOROURACIL] [Concomitant]
     Active Substance: FLUOROURACIL
     Indication: HEPATIC CANCER METASTATIC
  12. IRINOTECAN [Concomitant]
     Active Substance: IRINOTECAN
     Indication: HEPATIC CANCER METASTATIC

REACTIONS (4)
  - Rash [Not Recovered/Not Resolved]
  - Nausea [Unknown]
  - Therapy partial responder [Unknown]
  - Adenocarcinoma of colon [Recovering/Resolving]

NARRATIVE: CASE EVENT DATE: 20180904
